FAERS Safety Report 14586898 (Version 8)
Quarter: 2018Q3

REPORT INFORMATION
  Report Type: Spontaneous
  Country: BE (occurrence: BE)
  Receive Date: 20180301
  Receipt Date: 20180716
  Transmission Date: 20181010
  Serious: Yes (Hospitalization)
  Sender: FDA-Public Use
  Company Number: BE-PFIZER INC-2018085081

PATIENT
  Age: 34 Year
  Sex: Female
  Weight: 68 kg

DRUGS (14)
  1. NASONEX [Suspect]
     Active Substance: MOMETASONE FUROATE
     Indication: RHINITIS ALLERGIC
     Dosage: 2 DF, 1X/DAY
     Route: 045
     Dates: start: 20151126, end: 20160601
  2. CELESTONE /00008502/ [Concomitant]
     Dosage: UNK
     Route: 065
     Dates: start: 20161219, end: 20161220
  3. XOLAIR [Suspect]
     Active Substance: OMALIZUMAB
     Indication: CHRONIC SPONTANEOUS URTICARIA
     Dosage: 300 MG, QMO
     Route: 058
     Dates: start: 20111119, end: 20160519
  4. AERIUS [Suspect]
     Active Substance: DESLORATADINE
     Indication: CHRONIC SPONTANEOUS URTICARIA
     Dosage: 5 MG, 3X/DAY
     Route: 048
     Dates: start: 20150603, end: 20160601
  5. ASPIRINE [Concomitant]
     Active Substance: ASPIRIN
     Dosage: 100 MG, UNK
     Route: 065
  6. PANTOMED (PANTOPRAZOLE) [Suspect]
     Active Substance: PANTOPRAZOLE
     Dosage: 1 DF, 1X/DAY
     Route: 048
     Dates: start: 20160125, end: 20160601
  7. CLINDAMYCIN PHOSPHATE. [Suspect]
     Active Substance: CLINDAMYCIN PHOSPHATE
     Indication: ACNE
     Dosage: UNK
     Route: 061
     Dates: start: 20160128, end: 20160601
  8. TRECLINAX [Suspect]
     Active Substance: CLINDAMYCIN PHOSPHATE\TRETINOIN
     Indication: ACNE
     Dosage: UNK UNK, 1X/DAY
     Route: 061
     Dates: start: 20160128, end: 20160601
  9. L?THYROXINE /00068001/ [Concomitant]
     Active Substance: LEVOTHYROXINE
     Indication: AUTOIMMUNE THYROIDITIS
     Dosage: 50 UG, QD
     Route: 065
  10. SERETIDE [Suspect]
     Active Substance: FLUTICASONE PROPIONATE\SALMETEROL XINAFOATE
     Indication: ASTHMA
     Dosage: 50 MG, QD
     Route: 055
     Dates: start: 20150320, end: 20160601
  11. VENTOLIN [Suspect]
     Active Substance: ALBUTEROL SULFATE
     Indication: ASTHMA
     Dosage: UNK UNK, AS NEEDED
     Route: 055
     Dates: start: 20150320, end: 20160601
  12. ASPIRINE [Concomitant]
     Active Substance: ASPIRIN
     Dosage: 50 UG, 1X/DAY
     Route: 065
  13. AUGMENTIN [Concomitant]
     Active Substance: AMOXICILLIN\CLAVULANATE POTASSIUM
     Dosage: 875 MG, TID
     Route: 065
     Dates: start: 20070109
  14. FEROGRAD [Suspect]
     Active Substance: ASCORBIC ACID\FERROUS SULFATE
     Indication: ALOPECIA
     Dosage: UNK UNK, QD
     Route: 048
     Dates: start: 20160125, end: 20160601

REACTIONS (2)
  - Product use in unapproved indication [Unknown]
  - Premature delivery [Unknown]

NARRATIVE: CASE EVENT DATE: 20170112
